FAERS Safety Report 12233832 (Version 1)
Quarter: 2016Q2

REPORT INFORMATION
  Report Type: Spontaneous
  Country: US (occurrence: None)
  Receive Date: 20160401
  Receipt Date: 20160401
  Transmission Date: 20160815
  Serious: Yes (Hospitalization)
  Sender: FDA-Public Use
  Company Number: None

PATIENT
  Age: 68 Year
  Sex: Male

DRUGS (26)
  1. BENZONATATE. [Concomitant]
     Active Substance: BENZONATATE
  2. COLCHICINE. [Concomitant]
     Active Substance: COLCHICINE
  3. LOVASTATIN. [Concomitant]
     Active Substance: LOVASTATIN
  4. IBUPROFEN. [Concomitant]
     Active Substance: IBUPROFEN
  5. METFORMIN [Concomitant]
     Active Substance: METFORMIN HYDROCHLORIDE
  6. AMOX/K CLAV [Concomitant]
     Active Substance: AMOXICILLIN\CLAVULANATE POTASSIUM
  7. DIAZEPAM. [Concomitant]
     Active Substance: DIAZEPAM
  8. LANSOPRAZOLE. [Concomitant]
     Active Substance: LANSOPRAZOLE
  9. METHOTREXATE [Concomitant]
     Active Substance: METHOTREXATE
  10. METOPROL TAR [Concomitant]
  11. BENADRYL [Concomitant]
     Active Substance: DIPHENHYDRAMINE HYDROCHLORIDE
  12. HYDROCO/APAP [Concomitant]
     Active Substance: ACETAMINOPHEN\HYDROCODONE
  13. METHYLPRED [Concomitant]
     Active Substance: METHYLPREDNISOLONE
  14. PROMETH/COD [Concomitant]
  15. SULFAMETHOXAZOLE-TRIMETHOPRIM (SMZ) [Concomitant]
     Active Substance: SULFAMETHOXAZOLE\TRIMETHOPRIM
  16. AZITHROMYCIN ANHYDROUS. [Concomitant]
     Active Substance: AZITHROMYCIN ANHYDROUS
  17. LEVOFLOXACIN. [Concomitant]
     Active Substance: LEVOFLOXACIN
  18. VICODIN [Concomitant]
     Active Substance: ACETAMINOPHEN\HYDROCODONE BITARTRATE
  19. CIPROFLOXACN [Concomitant]
     Active Substance: CIPROFLOXACIN
  20. GABAPENTIN. [Concomitant]
     Active Substance: GABAPENTIN
  21. LISINOPRIL. [Concomitant]
     Active Substance: LISINOPRIL
  22. XELJANZ [Suspect]
     Active Substance: TOFACITINIB CITRATE
     Indication: RHEUMATOID ARTHRITIS
     Route: 048
  23. CLINDAMYCIN [Concomitant]
     Active Substance: CLINDAMYCIN\CLINDAMYCIN PHOSPHATE
  24. DIVISTA [Concomitant]
     Active Substance: BIOTIN\CHROMIUM PICOLINATE\CYANOCOBALAMIN\FOLIC ACID\OMEGA-3-ACID ETHYL ESTERS\PYRIDOXINE
  25. GLIPIZIDE. [Concomitant]
     Active Substance: GLIPIZIDE
  26. ONDANSETRON [Concomitant]
     Active Substance: ONDANSETRON

REACTIONS (2)
  - Pruritus [None]
  - Cardiac failure congestive [None]

NARRATIVE: CASE EVENT DATE: 201603
